FAERS Safety Report 9887477 (Version 5)
Quarter: 2014Q3

REPORT INFORMATION
  Report Type: Spontaneous
  Country: GB (occurrence: None)
  Receive Date: 20140206
  Receipt Date: 20140730
  Transmission Date: 20150326
  Serious: Yes (Life-Threatening, Hospitalization, Other)
  Sender: FDA-Public Use
  Company Number: AUR-APL-2014-01312

PATIENT
  Age: 26 Year
  Sex: Female

DRUGS (4)
  1. CITALOPRAM [Suspect]
     Active Substance: CITALOPRAM HYDROBROMIDE
     Indication: PRODUCT USED FOR UNKNOWN INDICATION
     Route: 048
  2. TOPAMAX [Suspect]
     Active Substance: TOPIRAMATE
     Indication: EPILEPSY
     Route: 048
     Dates: start: 201105, end: 2011
  3. TRAMADOL [Suspect]
     Active Substance: TRAMADOL
     Indication: PRODUCT USED FOR UNKNOWN INDICATION
     Dosage: UNKNOWN
  4. CODEINE (CODEINE) [Suspect]
     Active Substance: CODEINE
     Indication: PRODUCT USED FOR UNKNOWN INDICATION
     Dosage: UNKNOWN

REACTIONS (27)
  - Accidental overdose [None]
  - Blood magnesium decreased [None]
  - Blood potassium decreased [None]
  - Bacterial test positive [None]
  - Brain oedema [None]
  - Organ failure [None]
  - Blood bilirubin increased [None]
  - Haemoglobin decreased [None]
  - Personality change [None]
  - Borderline personality disorder [None]
  - Aspartate aminotransferase increased [None]
  - Weight decreased [None]
  - Tearfulness [None]
  - Dialysis [None]
  - Acidosis [None]
  - Aggression [None]
  - Hyperventilation [None]
  - Blood albumin decreased [None]
  - Renal impairment [None]
  - Psychiatric symptom [None]
  - Convulsion [None]
  - Anger [None]
  - Coma [None]
  - Epilepsy [None]
  - Irritability [None]
  - Platelet count decreased [None]
  - Blood urine present [None]

NARRATIVE: CASE EVENT DATE: 2011
